FAERS Safety Report 4383480-X (Version None)
Quarter: 2004Q2

REPORT INFORMATION
  Report Type: 
  Country: None (occurrence: None)
  Receive Date: 20040623
  Receipt Date: 20040616
  Transmission Date: 20050107
  Serious: Yes (Hospitalization)
  Sender: FDA-Public Use
  Company Number: 200416149GDDC

PATIENT
  Sex: Male

DRUGS (1)
  1. LANTUS [Suspect]

REACTIONS (1)
  - MEDICATION ERROR [None]
